FAERS Safety Report 7841475-5 (Version None)
Quarter: 2011Q4

REPORT INFORMATION
  Report Type: 
  Country: None (occurrence: None)
  Receive Date: 20111025
  Receipt Date: 20111017
  Transmission Date: 20120403
  Serious: Yes (Life-Threatening)
  Sender: FDA-Public Use
  Company Number: JP-JNJFOC-20111008551

PATIENT
  Sex: Male

DRUGS (10)
  1. FENTANYL-100 [Suspect]
     Indication: PAIN
     Route: 062
     Dates: start: 20110318, end: 20110422
  2. FENTANYL-100 [Suspect]
     Route: 062
     Dates: start: 20110514, end: 20110613
  3. SHAKUYAKUKANZOUTOU [Concomitant]
     Route: 048
     Dates: end: 20110613
  4. GABAPENTIN [Concomitant]
     Route: 048
     Dates: end: 20110613
  5. VOLTAREN [Concomitant]
     Route: 054
     Dates: end: 20110613
  6. CLONAZEPAM [Concomitant]
     Route: 048
     Dates: end: 20110613
  7. FENTANYL-100 [Suspect]
     Route: 062
     Dates: start: 20110423, end: 20110513
  8. CODEINE PHOSPHATE HEMIHYDRATE [Concomitant]
     Indication: PAIN
     Route: 048
     Dates: start: 20110318
  9. TEGRETOL [Concomitant]
     Route: 048
     Dates: end: 20110613
  10. CODEINE PHOSPHATE HEMIHYDRATE [Concomitant]
     Route: 048
     Dates: end: 20110613

REACTIONS (1)
  - CHOLECYSTITIS [None]
